FAERS Safety Report 14826259 (Version 1)
Quarter: 2018Q2

REPORT INFORMATION
  Report Type: Spontaneous
  Country: FR (occurrence: FR)
  Receive Date: 20180430
  Receipt Date: 20180430
  Transmission Date: 20180711
  Serious: Yes (Other)
  Sender: FDA-Public Use
  Company Number: FR-MERCK KGAA-2046833

PATIENT
  Age: 33 Year
  Sex: Female

DRUGS (1)
  1. NOVOTHYROX [Suspect]
     Active Substance: LEVOTHYROXINE SODIUM
     Indication: PRODUCT USED FOR UNKNOWN INDICATION

REACTIONS (38)
  - Loss of personal independence in daily activities [None]
  - Social avoidant behaviour [None]
  - Disturbance in attention [None]
  - Hypothyroidism [None]
  - Apathy [None]
  - Emotional distress [None]
  - Red blood cell count increased [Recovered/Resolved]
  - Dyspnoea [None]
  - Economic problem [None]
  - Myalgia [None]
  - Feeling cold [None]
  - Menorrhagia [None]
  - Aphasia [None]
  - Impaired work ability [None]
  - Visual impairment [None]
  - Nausea [None]
  - Vomiting [None]
  - Haematocrit increased [Recovered/Resolved]
  - General physical health deterioration [None]
  - Loss of consciousness [None]
  - Anger [None]
  - Costochondritis [None]
  - Psychiatric symptom [None]
  - Pallor [None]
  - Bedridden [None]
  - Fatigue [None]
  - Insomnia [None]
  - Arthralgia [None]
  - Mood altered [None]
  - Somnolence [None]
  - Family stress [None]
  - Headache [None]
  - Blood thyroid stimulating hormone increased [None]
  - Haemoglobin increased [Recovered/Resolved]
  - Pain [None]
  - Nervousness [None]
  - Loss of libido [None]
  - Personal relationship issue [None]

NARRATIVE: CASE EVENT DATE: 20170819
